FAERS Safety Report 21098013 (Version 9)
Quarter: 2023Q2

REPORT INFORMATION
  Report Type: Report from Study
  Country: US (occurrence: US)
  Receive Date: 20220719
  Receipt Date: 20230519
  Transmission Date: 20230721
  Serious: Yes (Hospitalization, Other)
  Sender: FDA-Public Use
  Company Number: US-TAKEDA-2022TUS038264

PATIENT
  Age: 57 Year
  Sex: Female

DRUGS (23)
  1. TEDUGLUTIDE [Suspect]
     Active Substance: TEDUGLUTIDE
     Indication: Short-bowel syndrome
     Dosage: 2.34 MILLIGRAM, QD
     Route: 058
     Dates: start: 20220510
  2. TEDUGLUTIDE [Suspect]
     Active Substance: TEDUGLUTIDE
     Indication: Short-bowel syndrome
     Dosage: 2.34 MILLIGRAM, QD
     Route: 058
     Dates: start: 20220510
  3. TEDUGLUTIDE [Suspect]
     Active Substance: TEDUGLUTIDE
     Indication: Short-bowel syndrome
     Dosage: 2.34 MILLIGRAM, QD
     Route: 058
     Dates: start: 20220510
  4. TEDUGLUTIDE [Suspect]
     Active Substance: TEDUGLUTIDE
     Indication: Short-bowel syndrome
     Dosage: 2.34 MILLIGRAM, QD
     Route: 058
     Dates: start: 20220510
  5. TEDUGLUTIDE [Suspect]
     Active Substance: TEDUGLUTIDE
     Dosage: 2.34 MILLIGRAM, QD
     Route: 058
     Dates: start: 20220511
  6. TEDUGLUTIDE [Suspect]
     Active Substance: TEDUGLUTIDE
     Dosage: 2.34 MILLIGRAM, QD
     Route: 058
     Dates: start: 20220511
  7. TEDUGLUTIDE [Suspect]
     Active Substance: TEDUGLUTIDE
     Dosage: 2.34 MILLIGRAM, QD
     Route: 058
     Dates: start: 20220511
  8. TEDUGLUTIDE [Suspect]
     Active Substance: TEDUGLUTIDE
     Dosage: 2.34 MILLIGRAM, QD
     Route: 058
     Dates: start: 20220511
  9. TEDUGLUTIDE [Suspect]
     Active Substance: TEDUGLUTIDE
     Dosage: 0.234 MILLILITER, QD
     Route: 058
     Dates: start: 20220511
  10. TEDUGLUTIDE [Suspect]
     Active Substance: TEDUGLUTIDE
     Dosage: 0.234 MILLILITER, QD
     Route: 058
     Dates: start: 20220511
  11. TEDUGLUTIDE [Suspect]
     Active Substance: TEDUGLUTIDE
     Dosage: 0.234 MILLILITER, QD
     Route: 058
     Dates: start: 20220511
  12. TEDUGLUTIDE [Suspect]
     Active Substance: TEDUGLUTIDE
     Dosage: 0.234 MILLILITER, QD
     Route: 058
     Dates: start: 20220511
  13. TEDUGLUTIDE [Suspect]
     Active Substance: TEDUGLUTIDE
     Dosage: 2.34 MILLIGRAM, QD
     Route: 058
     Dates: start: 202205
  14. TEDUGLUTIDE [Suspect]
     Active Substance: TEDUGLUTIDE
     Dosage: 2.34 MILLIGRAM, QD
     Route: 058
     Dates: start: 202205
  15. TEDUGLUTIDE [Suspect]
     Active Substance: TEDUGLUTIDE
     Dosage: 2.34 MILLIGRAM, QD
     Route: 058
     Dates: start: 202205
  16. TEDUGLUTIDE [Suspect]
     Active Substance: TEDUGLUTIDE
     Dosage: 2.34 MILLIGRAM, QD
     Route: 058
     Dates: start: 202205
  17. TEDUGLUTIDE [Suspect]
     Active Substance: TEDUGLUTIDE
     Dosage: 0.23 MILLILITER, QD
     Route: 058
  18. TEDUGLUTIDE [Suspect]
     Active Substance: TEDUGLUTIDE
     Dosage: 0.23 MILLILITER, QD
     Route: 058
  19. TEDUGLUTIDE [Suspect]
     Active Substance: TEDUGLUTIDE
     Dosage: 0.23 MILLILITER, QD
     Route: 058
  20. TEDUGLUTIDE [Suspect]
     Active Substance: TEDUGLUTIDE
     Dosage: 0.23 MILLILITER, QD
     Route: 058
  21. DIGOXIN [Suspect]
     Active Substance: DIGOXIN
     Indication: Product used for unknown indication
     Dosage: UNK
     Route: 065
  22. PLAVIX [Suspect]
     Active Substance: CLOPIDOGREL BISULFATE
     Indication: Product used for unknown indication
     Dosage: UNK
     Route: 065
  23. ATENOLOL [Concomitant]
     Active Substance: ATENOLOL

REACTIONS (16)
  - Cardiac disorder [Unknown]
  - White blood cell count increased [Unknown]
  - Sepsis [Unknown]
  - Cholecystitis infective [Unknown]
  - Vitamin D decreased [Unknown]
  - Blister [Unknown]
  - Somnolence [Unknown]
  - Weight decreased [Unknown]
  - Gastroenteritis viral [Unknown]
  - Blood creatinine increased [Unknown]
  - Illness [Unknown]
  - Diarrhoea [Not Recovered/Not Resolved]
  - Hypersomnia [Unknown]
  - Rash [Unknown]
  - Vomiting [Not Recovered/Not Resolved]
  - Nausea [Not Recovered/Not Resolved]

NARRATIVE: CASE EVENT DATE: 20220711
